FAERS Safety Report 6839539-8 (Version None)
Quarter: 2010Q3

REPORT INFORMATION
  Report Type: 
  Country: None (occurrence: None)
  Receive Date: 20100714
  Receipt Date: 20091230
  Transmission Date: 20110219
  Serious: No
  Sender: FDA-Public Use
  Company Number: A0837225A

PATIENT
  Age: 15 Year
  Sex: Male

DRUGS (5)
  1. FLOVENT [Suspect]
     Indication: ASTHMA
     Route: 055
     Dates: start: 20090201, end: 20090601
  2. ADVAIR DISKUS 100/50 [Suspect]
     Indication: PRODUCT USED FOR UNKNOWN INDICATION
     Dosage: 1PUFF TWICE PER DAY
     Route: 055
  3. RHINOCORT [Concomitant]
  4. SINGULAIR [Concomitant]
  5. VYVANSE [Concomitant]

REACTIONS (2)
  - DRUG INEFFECTIVE [None]
  - PULMONARY FUNCTION TEST DECREASED [None]
